FAERS Safety Report 9079708 (Version 1)
Quarter: 2013Q1

REPORT INFORMATION
  Report Type: Report from Study
  Country: US (occurrence: US)
  Receive Date: 20130130
  Receipt Date: 20130130
  Transmission Date: 20140127
  Serious: No
  Sender: FDA-Public Use
  Company Number: US-ABBOTT-12P-163-0963047-00

PATIENT
  Age: 57 Year
  Sex: Female

DRUGS (4)
  1. HUMIRA 40 MG/0.8 ML PEN [Suspect]
     Indication: CROHN^S DISEASE
     Route: 058
     Dates: start: 20120616
  2. MESALAMINE [Concomitant]
     Indication: CROHN^S DISEASE
     Dosage: IN THE MORNING
  3. HYDROCORTISONE ENEMA [Concomitant]
     Indication: CROHN^S DISEASE
     Dosage: 100MG DAILY
  4. CHOLESTYRAMINE [Concomitant]
     Indication: BLOOD CHOLESTEROL INCREASED
     Dosage: 1 PACKAGE TWICE A DAY BEFORE MEALS

REACTIONS (1)
  - Injection site pain [Recovered/Resolved]
